FAERS Safety Report 17691545 (Version 1)
Quarter: 2020Q2

REPORT INFORMATION
  Report Type: Spontaneous
  Country: CN (occurrence: CN)
  Receive Date: 20200422
  Receipt Date: 20200422
  Transmission Date: 20200714
  Serious: Yes (Other)
  Sender: FDA-Public Use
  Company Number: CN-ROCHE-2586358

PATIENT
  Age: 65 Year
  Sex: Male

DRUGS (32)
  1. PEMETREXED. [Concomitant]
     Active Substance: PEMETREXED
     Dosage: PC REGIMEN, DAY1, EVERY 3 WEEKS AS ONE CYCLE
     Route: 065
     Dates: start: 20180207
  2. PEMETREXED. [Concomitant]
     Active Substance: PEMETREXED
     Dosage: DAY1, EVERY 3 WEEKS AS ONE CYCLE
     Route: 065
     Dates: start: 20180420
  3. PEMETREXED. [Concomitant]
     Active Substance: PEMETREXED
     Dosage: 1 CYCLE
     Route: 065
     Dates: start: 20190115
  4. AVASTIN [Suspect]
     Active Substance: BEVACIZUMAB
     Dosage: EVERY 3 WEEKS AS ONE CYCLE
     Route: 065
     Dates: start: 20180326
  5. NIVOLUMAB [Suspect]
     Active Substance: NIVOLUMAB
     Indication: LUNG ADENOCARCINOMA
     Dosage: ON 2019-6-19, 2019-7-3, 2019-7-18, 2019-8-6, 2019-8-20, 2019-9-5, 2019-9-23, 2019-11-19, 2019-12-19
     Route: 065
     Dates: start: 20190619
  6. PEMETREXED. [Concomitant]
     Active Substance: PEMETREXED
     Dosage: PC REGIMEN, DAY1, EVERY 3 WEEKS AS ONE CYCLE
     Route: 065
     Dates: start: 20180306
  7. CARBOPLATIN. [Concomitant]
     Active Substance: CARBOPLATIN
     Indication: LUNG ADENOCARCINOMA
     Dosage: PC REGIMEN, DAY1
     Route: 065
     Dates: start: 20171201
  8. CARBOPLATIN. [Concomitant]
     Active Substance: CARBOPLATIN
     Dosage: PC REGIMEN, DAY1, EVERY 3 WEEKS AS ONE CYCLE
     Route: 065
     Dates: start: 20180207
  9. CARBOPLATIN. [Concomitant]
     Active Substance: CARBOPLATIN
     Dosage: PC REGIMEN, DAY1, EVERY 3 WEEKS AS ONE CYCLE
     Route: 065
     Dates: start: 20180326
  10. AVASTIN [Suspect]
     Active Substance: BEVACIZUMAB
     Dosage: EVERY 3 WEEKS AS ONE CYCLE
     Route: 065
     Dates: start: 20180514
  11. CARBOPLATIN. [Concomitant]
     Active Substance: CARBOPLATIN
     Dosage: PC REGIMEN, DAY1
     Route: 065
     Dates: start: 20171225
  12. CARBOPLATIN. [Concomitant]
     Active Substance: CARBOPLATIN
     Dosage: PC REGIMEN, DAY1, EVERY 3 WEEKS AS ONE CYCLE
     Route: 065
     Dates: start: 20180306
  13. AVASTIN [Suspect]
     Active Substance: BEVACIZUMAB
     Dosage: EVERY 4-5 WEEKS AS ONE CYCLE
     Route: 065
     Dates: start: 20180808
  14. PEMETREXED. [Concomitant]
     Active Substance: PEMETREXED
     Dosage: PC REGIMEN, DAY1, EVERY 3 WEEKS AS ONE CYCLE
     Route: 065
     Dates: start: 20180115
  15. PEMETREXED. [Concomitant]
     Active Substance: PEMETREXED
     Dosage: DAY1, EVERY 4-5 WEEKS AS ONE CYCLE
     Route: 065
     Dates: start: 20180808
  16. AVASTIN [Suspect]
     Active Substance: BEVACIZUMAB
     Dosage: EVERY 3 WEEKS AS ONE CYCLE
     Route: 065
     Dates: start: 20180207
  17. AVASTIN [Suspect]
     Active Substance: BEVACIZUMAB
     Dosage: EVERY 3 WEEKS AS ONE CYCLE
     Route: 042
     Dates: start: 20180420
  18. AVASTIN [Suspect]
     Active Substance: BEVACIZUMAB
     Route: 065
     Dates: start: 20180920
  19. AVASTIN [Suspect]
     Active Substance: BEVACIZUMAB
     Route: 065
     Dates: start: 20181114
  20. AVASTIN [Suspect]
     Active Substance: BEVACIZUMAB
     Route: 065
     Dates: start: 20190115
  21. PEMETREXED. [Concomitant]
     Active Substance: PEMETREXED
     Dosage: PC REGIMEN, DAY1
     Route: 065
     Dates: start: 20171225
  22. PEMETREXED. [Concomitant]
     Active Substance: PEMETREXED
     Dosage: DAY1, EVERY 3 WEEKS AS ONE CYCLE
     Route: 065
     Dates: start: 20180514
  23. PEMETREXED. [Concomitant]
     Active Substance: PEMETREXED
     Dosage: DAY1, EVERY 4-5 WEEKS AS ONE CYCLE
     Route: 065
     Dates: start: 20180621
  24. PEMETREXED. [Concomitant]
     Active Substance: PEMETREXED
     Route: 065
     Dates: start: 20180920
  25. AVASTIN [Suspect]
     Active Substance: BEVACIZUMAB
     Dosage: EVERY 3 WEEKS AS ONE CYCLE
     Route: 065
     Dates: start: 20180306
  26. CARBOPLATIN. [Concomitant]
     Active Substance: CARBOPLATIN
     Dosage: PC REGIMEN, DAY1, EVERY 3 WEEKS AS ONE CYCLE
     Route: 065
     Dates: start: 20180115
  27. AVASTIN [Suspect]
     Active Substance: BEVACIZUMAB
     Indication: LUNG ADENOCARCINOMA
     Dosage: EVERY 3 WEEKS AS ONE CYCLE
     Route: 065
     Dates: start: 20180115
  28. AVASTIN [Suspect]
     Active Substance: BEVACIZUMAB
     Dosage: EVERY 4-5 WEEKS AS ONE CYCLE
     Route: 065
     Dates: start: 20180621
  29. PEMETREXED. [Concomitant]
     Active Substance: PEMETREXED
     Indication: LUNG ADENOCARCINOMA
     Dosage: PC REGIMEN, DAY1
     Route: 065
     Dates: start: 20171201
  30. PEMETREXED. [Concomitant]
     Active Substance: PEMETREXED
     Dosage: PC REGIMEN, DAY1, EVERY 3 WEEKS AS ONE CYCLE
     Route: 065
     Dates: start: 20180326
  31. PEMETREXED. [Concomitant]
     Active Substance: PEMETREXED
     Route: 065
     Dates: start: 20181114
  32. AMLODIPINE BESYLATE. [Concomitant]
     Active Substance: AMLODIPINE BESYLATE
     Indication: HYPERTENSION
     Route: 065
     Dates: start: 20180415

REACTIONS (5)
  - Aortic dissection [Unknown]
  - Back pain [Recovering/Resolving]
  - Addison^s disease [Recovering/Resolving]
  - Immune-mediated hypothyroidism [Unknown]
  - Hepatic cyst [Unknown]

NARRATIVE: CASE EVENT DATE: 2019
